FAERS Safety Report 14766632 (Version 1)
Quarter: 2018Q2

REPORT INFORMATION
  Report Type: Report from Study
  Country: BR (occurrence: BR)
  Receive Date: 20180416
  Receipt Date: 20180416
  Transmission Date: 20180711
  Serious: Yes (Other)
  Sender: FDA-Public Use
  Company Number: BR-ROCHE-2103392

PATIENT
  Sex: Female
  Weight: 71 kg

DRUGS (2)
  1. HERCEPTIN [Suspect]
     Active Substance: TRASTUZUMAB
     Indication: BREAST CANCER
     Dosage: WEEKLY
     Route: 042
     Dates: start: 20160520, end: 20170530
  2. TAXOL [Concomitant]
     Active Substance: PACLITAXEL
     Indication: BREAST CANCER
     Dosage: WEEKLY
     Route: 065
     Dates: start: 20160520, end: 20170530

REACTIONS (2)
  - Breast cancer recurrent [Unknown]
  - Drug ineffective [Unknown]
